FAERS Safety Report 7115643-4 (Version None)
Quarter: 2010Q4

REPORT INFORMATION
  Report Type: 
  Country: None (occurrence: None)
  Receive Date: 20101122
  Receipt Date: 20101118
  Transmission Date: 20110411
  Serious: Yes (Life-Threatening, Other)
  Sender: FDA-Public Use
  Company Number: NL-MILLENNIUM PHARMACEUTICALS, INC.-2010-05800

PATIENT

DRUGS (7)
  1. VELCADE [Suspect]
     Indication: MULTIPLE MYELOMA
     Dosage: 2.3 MG, CYCLIC
     Route: 042
     Dates: start: 20070529, end: 20070608
  2. ADRIAMYCIN PFS [Suspect]
     Indication: MULTIPLE MYELOMA
     Dosage: 16 MG, CYCLIC
     Route: 042
     Dates: start: 20070529, end: 20070602
  3. ADRIAMYCIN PFS [Suspect]
     Dosage: 109 MG, UNK
     Route: 042
     Dates: start: 20070830, end: 20070830
  4. DEXAMETHASONE [Suspect]
     Indication: MULTIPLE MYELOMA
     Dosage: 40 MG, CYCLIC
     Route: 048
     Dates: start: 20070529, end: 20070617
  5. DEXAMETHASONE [Suspect]
     Dosage: 40 MG, UNK
     Route: 048
     Dates: start: 20070830, end: 20070902
  6. CYCLOPHOSPHAMIDE [Suspect]
     Indication: MULTIPLE MYELOMA
     Dosage: 1830 MG, UNK
     Route: 042
     Dates: start: 20070830, end: 20070830
  7. NEUPOGEN [Suspect]
     Indication: MULTIPLE MYELOMA
     Dosage: 600 UG, UNK
     Route: 058
     Dates: start: 20070903, end: 20070910

REACTIONS (2)
  - DEEP VEIN THROMBOSIS [None]
  - PERIPHERAL SENSORY NEUROPATHY [None]
